FAERS Safety Report 8673065 (Version 5)
Quarter: 2012Q4

REPORT INFORMATION
  Report Type: 
  Country: US (occurrence: US)
  Receive Date: 20120719
  Receipt Date: 20121126
  Transmission Date: 20130627
  Serious: Yes (Hospitalization, Disabling, Other)
  Sender: FDA-Public Use
  Company Number: US-009507513-1207USA003707

PATIENT

DRUGS (34)
  1. FOSAMAX [Suspect]
     Indication: OSTEOPOROSIS
     Dosage: 70 mg, qw
     Route: 048
     Dates: start: 200207, end: 201010
  2. FOSAMAX [Suspect]
     Indication: OSTEOPENIA
     Dosage: UNK
     Route: 048
     Dates: start: 200207, end: 2005
  3. FOSAMAX [Suspect]
     Indication: OSTEOPOROSIS
     Dosage: 70 mg, qw
     Route: 048
     Dates: start: 2008, end: 201010
  4. FOSAMAX [Suspect]
     Indication: OSTEOPENIA
     Dosage: UNK
     Route: 048
     Dates: start: 2005, end: 201010
  5. ALENDRONATE SODIUM [Suspect]
     Indication: OSTEOPOROSIS
     Dosage: 70 mg, qw
     Route: 048
  6. ALENDRONATE SODIUM [Suspect]
     Indication: OSTEOPENIA
  7. XANAX [Concomitant]
     Indication: DEPRESSION
     Dosage: 0.5 mg, q 6 hrs prn
     Dates: start: 1990
  8. XANAX [Concomitant]
     Indication: ANXIETY
  9. VITAMINS (UNSPECIFIED) [Concomitant]
     Indication: PRODUCT USED FOR UNKNOWN INDICATION
     Dosage: UNK, qd
     Dates: start: 1982
  10. VITAMIN E [Concomitant]
     Indication: PRODUCT USED FOR UNKNOWN INDICATION
     Dosage: 400 IU, qd
     Dates: start: 1982
  11. CORTICOSTEROIDS (UNSPECIFIED) [Concomitant]
     Indication: PRODUCT USED FOR UNKNOWN INDICATION
     Dosage: UNK
     Dates: end: 2011
  12. HORMONES (UNSPECIFIED) [Concomitant]
     Indication: PRODUCT USED FOR UNKNOWN INDICATION
     Dosage: UNK
     Dates: start: 1991, end: 2005
  13. ALBUTEROL [Concomitant]
     Indication: ASTHMA
     Dosage: UNK
     Route: 055
     Dates: start: 1950
  14. ASTELIN (AZELASTINE HYDROCHLORIDE) [Concomitant]
     Indication: SEASONAL ALLERGY
     Dosage: Microgram, 2 sprays BID ea nostril
     Route: 045
     Dates: start: 2002
  15. NASONEX [Concomitant]
     Indication: SEASONAL ALLERGY
     Dosage: 100 Microgram, ea nostril qd
     Route: 045
     Dates: start: 2002
  16. SINGULAIR [Concomitant]
     Indication: SEASONAL ALLERGY
     Dosage: 10 mg, qpm
     Route: 048
     Dates: start: 2002
  17. ZYRTEC [Concomitant]
     Indication: SEASONAL ALLERGY
     Dosage: 10 mg, qd
     Route: 048
     Dates: start: 1962
  18. ULTRAM [Concomitant]
     Indication: PAIN
     Dosage: UNK
     Dates: start: 201010
  19. PERCOCET [Concomitant]
     Indication: PAIN
     Dosage: UNK
     Dates: start: 201010, end: 201012
  20. TYLENOL [Concomitant]
     Indication: PAIN
     Dosage: UNK
     Dates: start: 1962
  21. IBUPROFEN [Concomitant]
     Indication: PAIN
     Dosage: UNK
     Dates: start: 1962
  22. PROVENTIL [Concomitant]
     Indication: ASTHMA
     Dosage: 180 Microgram, 2 puffs q3-4 hrs prn
     Route: 055
  23. SEREVENT [Concomitant]
     Indication: PRODUCT USED FOR UNKNOWN INDICATION
     Dosage: 2 puffs bid
     Route: 048
  24. FLOVENT [Concomitant]
     Indication: PRODUCT USED FOR UNKNOWN INDICATION
     Dosage: 110 Microgram,2-4 puffs bid
     Route: 048
  25. LIPITOR [Concomitant]
     Indication: HYPERLIPIDAEMIA
     Dosage: 10-20 mg,
  26. LIPITOR [Concomitant]
     Indication: BLOOD CHOLESTEROL INCREASED
  27. ZETIA [Concomitant]
     Indication: HYPERLIPIDAEMIA
     Dosage: 10 mg, qd
     Route: 048
  28. ZETIA [Concomitant]
     Indication: BLOOD CHOLESTEROL INCREASED
  29. CALCIUM (UNSPECIFIED) [Concomitant]
     Indication: OSTEOPOROSIS
     Dosage: 1500 mg, qd
  30. VOLMAX [Concomitant]
     Indication: ASTHMA
     Dosage: 4-8 mg, bid
  31. GEMFIBROZIL [Concomitant]
     Indication: HYPERLIPIDAEMIA
     Dosage: 600 mg, bid
     Dates: start: 20060420
  32. LOPID [Concomitant]
     Indication: HYPERLIPIDAEMIA
     Dosage: 600 mg, bid
  33. DUONEB [Concomitant]
     Indication: ASTHMA
     Dosage: 2.5/0.5/3ml, qid  prn
     Route: 055
  34. TYLENOL EXTRA STRENGTH [Concomitant]
     Indication: PAIN
     Dosage: 2 tabs, qd
     Route: 048

REACTIONS (54)
  - Femur fracture [Unknown]
  - Open reduction of fracture [Unknown]
  - Femur fracture [Unknown]
  - Osteoporosis [Unknown]
  - Stress fracture [Unknown]
  - Low turnover osteopathy [Unknown]
  - Animal bite [Unknown]
  - Animal bite [Unknown]
  - Aphonia [Unknown]
  - Transfusion [Unknown]
  - Drug ineffective [Unknown]
  - Cardiac disorder [Unknown]
  - Blood creatine phosphokinase increased [Unknown]
  - Depression [Not Recovered/Not Resolved]
  - Anxiety [Not Recovered/Not Resolved]
  - Conjunctivitis [Unknown]
  - Influenza [Unknown]
  - Sinusitis [Unknown]
  - Spinal osteoarthritis [Unknown]
  - Intervertebral disc degeneration [Unknown]
  - Conjunctival haemorrhage [Unknown]
  - Dermal cyst [Recovered/Resolved]
  - Animal scratch [Unknown]
  - Animal bite [Unknown]
  - Rhinitis allergic [Unknown]
  - Sinusitis [Unknown]
  - Asthma [Unknown]
  - Hyperlipidaemia [Unknown]
  - Spinal compression fracture [Unknown]
  - Large intestine polyp [Unknown]
  - Glucose tolerance impaired [Unknown]
  - Spinal pain [Unknown]
  - Spinal compression fracture [Unknown]
  - Paraesthesia [Unknown]
  - Pelvic fracture [Unknown]
  - Intervertebral disc protrusion [Unknown]
  - Facet joint syndrome [Unknown]
  - Back injury [Unknown]
  - Animal scratch [Unknown]
  - Vitamin D deficiency [Unknown]
  - Fall [Unknown]
  - Bone contusion [Unknown]
  - Rib fracture [Unknown]
  - Nasopharyngitis [Unknown]
  - Dyspnoea [Unknown]
  - Blood test abnormal [Unknown]
  - Blood lactate dehydrogenase increased [Unknown]
  - Anaemia [Unknown]
  - Tachycardia [Unknown]
  - Groin pain [Unknown]
  - Dyspepsia [Unknown]
  - Flatulence [Unknown]
  - Drug ineffective [Unknown]
  - Myalgia [Unknown]
